FAERS Safety Report 6927465-5 (Version None)
Quarter: 2010Q3

REPORT INFORMATION
  Report Type: 
  Country: None (occurrence: None)
  Receive Date: 20100817
  Receipt Date: 20100805
  Transmission Date: 20110219
  Serious: Yes (Other)
  Sender: FDA-Public Use
  Company Number: US-JNJFOC-20100802132

PATIENT
  Sex: Female
  Weight: 88.45 kg

DRUGS (9)
  1. REMICADE [Suspect]
     Indication: RHEUMATOID ARTHRITIS
     Route: 042
  2. METHOTREXATE [Concomitant]
     Indication: RHEUMATOID ARTHRITIS
  3. RECLAST [Concomitant]
     Indication: OSTEOPOROSIS
  4. NORVASC [Concomitant]
     Indication: HYPERTENSION
  5. METFORMIN [Concomitant]
     Indication: GLUCOSE TOLERANCE IMPAIRED
  6. PREMPHASE 14/14 [Concomitant]
     Indication: HORMONE REPLACEMENT THERAPY
  7. SYNTHROID [Concomitant]
     Indication: THYROID DISORDER
  8. LEXAPRO [Concomitant]
  9. NEXIUM [Concomitant]

REACTIONS (1)
  - RETINAL VEIN OCCLUSION [None]
